FAERS Safety Report 23791486 (Version 2)
Quarter: 2024Q3

REPORT INFORMATION
  Report Type: Spontaneous
  Country: FR (occurrence: FR)
  Receive Date: 20240429
  Receipt Date: 20240830
  Transmission Date: 20241017
  Serious: Yes (Death, Hospitalization, Other)
  Sender: Haleon PLC
  Company Number: None

PATIENT
  Age: 67 Year
  Sex: Male
  Weight: 74 kg

DRUGS (11)
  1. ACETAMINOPHEN [Suspect]
     Active Substance: ACETAMINOPHEN
     Indication: Product used for unknown indication
     Dosage: DOSAGE TEXT: 3 G/DAY
     Route: 048
  2. ESOMEPRAZOLE [Suspect]
     Active Substance: ESOMEPRAZOLE
     Indication: Helicobacter infection
     Dosage: 20 MG, BID
     Route: 048
     Dates: start: 20100424, end: 20100430
  3. COLCHICINE [Suspect]
     Active Substance: COLCHICINE
     Indication: Hyperuricaemia
     Dosage: 3 MG/DAY DURING 6 DAYS2 MG/DAY DURING 1 DAY 1 MG/DAY DURING 4 DAYS NUMBER OF SEPARATE DOSAGES: 3
     Route: 048
     Dates: start: 20100423, end: 20100504
  4. COLCHICINE [Suspect]
     Active Substance: COLCHICINE
     Indication: Rheumatoid arthritis
     Dosage: 3 MG/DAY DURING 6 DAYS2 MG/DAY DURING 1 DAY 1 MG/DAY DURING 4 DAYS NUMBER OF SEPARATE DOSAGES: 3?...
     Route: 048
     Dates: end: 20100504
  5. SIMVASTATIN [Suspect]
     Active Substance: SIMVASTATIN
     Indication: Product used for unknown indication
     Dosage: DOSAGE NOT SPECIFIED
  6. CLARITHROMYCIN [Suspect]
     Active Substance: CLARITHROMYCIN
     Indication: Helicobacter infection
     Dosage: 1 GRAM DAILY
     Route: 048
     Dates: start: 20100424, end: 20100501
  7. NORFLOXACIN [Suspect]
     Active Substance: NORFLOXACIN
     Indication: Product used for unknown indication
     Dosage: DOSAGE NOT SPECIFIED
  8. IRBESARTAN [Suspect]
     Active Substance: IRBESARTAN
     Indication: Hypertension
     Dosage: 150 MG DAILY?FIRST ADMIN DATE 2010-02
     Route: 048
  9. AMOXICILLIN TRIHYDRATE [Suspect]
     Active Substance: AMOXICILLIN
     Indication: Helicobacter gastritis
     Dosage: 2 GRAMS DAILY
     Route: 048
     Dates: start: 20100424, end: 20100501
  10. SMECTA [Suspect]
     Active Substance: MONTMORILLONITE
     Indication: Product used for unknown indication
     Dosage: DOSE NOT SPECIFIED
  11. VERAPAMIL HYDROCHLORIDE [Suspect]
     Active Substance: VERAPAMIL HYDROCHLORIDE
     Indication: Hypertension
     Dosage: 240MG/DAY
     Route: 048
     Dates: start: 20100126, end: 20100507

REACTIONS (6)
  - Shock [Fatal]
  - Neutropenia [Fatal]
  - Aspiration [Fatal]
  - Cardio-respiratory arrest [Fatal]
  - Thrombocytopenia [Fatal]
  - Bone marrow failure [Fatal]

NARRATIVE: CASE EVENT DATE: 20100503
